FAERS Safety Report 23312465 (Version 3)
Quarter: 2023Q4

REPORT INFORMATION
  Report Type: Spontaneous
  Country: US (occurrence: None)
  Receive Date: 20231219
  Receipt Date: 20231228
  Transmission Date: 20240110
  Serious: Yes (Death)
  Sender: FDA-Public Use
  Company Number: US-ROCHE-3477338

PATIENT
  Sex: Female
  Weight: 33.9 kg

DRUGS (13)
  1. ALECENSA [Suspect]
     Active Substance: ALECTINIB HYDROCHLORIDE
     Indication: Neuroblastoma
     Route: 048
     Dates: start: 20230829
  2. MORPHINE SULFATE [Concomitant]
     Active Substance: MORPHINE SULFATE
     Dosage: 100 MG/5ML SOL
  3. POLYETHYLENE GLYCOL 3350 [Concomitant]
     Active Substance: POLYETHYLENE GLYCOL 3350
  4. ZYKADIA [Concomitant]
     Active Substance: CERITINIB
  5. CELECOXIB [Concomitant]
     Active Substance: CELECOXIB
  6. GRANISETRON [Concomitant]
     Active Substance: GRANISETRON
  7. GUANFACINE [Concomitant]
     Active Substance: GUANFACINE
  8. HYDROXYZINE [Concomitant]
     Active Substance: HYDROXYZINE HYDROCHLORIDE
  9. LORAZEPAM [Concomitant]
     Active Substance: LORAZEPAM
  10. MELATONIN [Concomitant]
     Active Substance: MELATONIN
  11. TRANSDERM SCOP [Concomitant]
     Active Substance: SCOPOLAMINE
  12. POTASSIUM CHLORIDE [Concomitant]
     Active Substance: POTASSIUM CHLORIDE
     Dosage: 20 MEQ ER TAB.
  13. LACTULOSE [Concomitant]
     Active Substance: LACTULOSE
     Dosage: 10GM/15 ML SOL,

REACTIONS (1)
  - Neuroblastoma [Fatal]
